FAERS Safety Report 7655697-X (Version None)
Quarter: 2011Q3

REPORT INFORMATION
  Report Type: 
  Country: None (occurrence: None)
  Receive Date: 20110729
  Receipt Date: 20110718
  Transmission Date: 20111222
  Serious: Yes (Disabling)
  Sender: FDA-Public Use
  Company Number: OSCN-NO-0901S-0031

PATIENT
  Age: 36 Year
  Sex: Female
  Weight: 65 kg

DRUGS (8)
  1. VITAMINS (DIALYSIS VITAMINS) (VITAMINS /90003601/) [Concomitant]
  2. MEGLUMINE GADOTERATE (DOTAREM) (MEGLUMINE GADOTERATE) [Concomitant]
  3. INSULIN (INSULIN) [Concomitant]
  4. OMNISCAN [Suspect]
     Indication: PRODUCT USED FOR UNKNOWN INDICATION
     Dosage: 30 ML, SINGLE DOSE, INTRAVENOUS 40 ML, SINGLE DOSE, INTRAVENOUS
     Route: 042
     Dates: start: 20020930, end: 20020930
  5. OMNISCAN [Suspect]
     Indication: PRODUCT USED FOR UNKNOWN INDICATION
     Dosage: 30 ML, SINGLE DOSE, INTRAVENOUS 40 ML, SINGLE DOSE, INTRAVENOUS
     Route: 042
     Dates: start: 20010530, end: 20010530
  6. EPOETIN BETA (NEORECORMON) (EPOETIN BETA) [Concomitant]
  7. RAMIPRIL [Concomitant]
  8. ISRADEPINE (LOMIR) (ISRADIPINE) [Concomitant]

REACTIONS (15)
  - DIABETIC COMPLICATION [None]
  - MITRAL VALVE INCOMPETENCE [None]
  - WEIGHT FLUCTUATION [None]
  - EJECTION FRACTION DECREASED [None]
  - DRUG INTERACTION [None]
  - TOE AMPUTATION [None]
  - WOUND [None]
  - URTICARIA [None]
  - FOOT DEFORMITY [None]
  - KIDNEY TRANSPLANT REJECTION [None]
  - NEPHROGENIC SYSTEMIC FIBROSIS [None]
  - RENAL TRANSPLANT [None]
  - SURGICAL PROCEDURE REPEATED [None]
  - IMPAIRED HEALING [None]
  - LIVER DISORDER [None]
